FAERS Safety Report 7186696-2 (Version None)
Quarter: 2010Q4

REPORT INFORMATION
  Report Type: 
  Country: None (occurrence: None)
  Receive Date: 20101222
  Receipt Date: 20101216
  Transmission Date: 20110411
  Serious: Yes (Other)
  Sender: FDA-Public Use
  Company Number: US-US-EMD SERONO, INC.-7032412

PATIENT
  Sex: Female
  Weight: 104 kg

DRUGS (1)
  1. REBIF [Suspect]
     Indication: MULTIPLE SCLEROSIS
     Route: 058
     Dates: start: 20061101, end: 20100101

REACTIONS (3)
  - AUTOIMMUNE HEPATITIS [None]
  - NEURALGIA [None]
  - RHEUMATOID ARTHRITIS [None]
